FAERS Safety Report 16994292 (Version 3)
Quarter: 2020Q1

REPORT INFORMATION
  Report Type: Report from Study
  Country: BR (occurrence: BR)
  Receive Date: 20191105
  Receipt Date: 20200324
  Transmission Date: 20200409
  Serious: Yes (Other)
  Sender: FDA-Public Use
  Company Number: NVSC2019BR023141

PATIENT
  Age: 28 Year
  Sex: Male

DRUGS (4)
  1. COSENTYX [Suspect]
     Active Substance: SECUKINUMAB
     Indication: ANKYLOSING SPONDYLITIS
     Dosage: 150 MG, QMO
     Route: 065
  2. MORPHINE [Concomitant]
     Active Substance: MORPHINE
     Indication: PRODUCT USED FOR UNKNOWN INDICATION
     Dosage: UNK
     Route: 065
  3. COSENTYX [Suspect]
     Active Substance: SECUKINUMAB
     Dosage: 150 MG, QMO
     Route: 065
     Dates: start: 20190718
  4. COSENTYX [Suspect]
     Active Substance: SECUKINUMAB
     Dosage: 150 MG, QMO
     Route: 065

REACTIONS (9)
  - Helicobacter infection [Unknown]
  - Furuncle [Recovered/Resolved]
  - Pain in extremity [Unknown]
  - Skin discolouration [Unknown]
  - Purulent discharge [Unknown]
  - Pain [Unknown]
  - Neck pain [Unknown]
  - Arthralgia [Unknown]
  - Treatment failure [Unknown]

NARRATIVE: CASE EVENT DATE: 201907
